FAERS Safety Report 6062796-5 (Version None)
Quarter: 2009Q1

REPORT INFORMATION
  Report Type: 
  Country: None (occurrence: None)
  Receive Date: 20090203
  Receipt Date: 20090129
  Transmission Date: 20090719
  Serious: Yes (Death, Hospitalization)
  Sender: FDA-Public Use
  Company Number: FR-AVENTIS-200910307FR

PATIENT
  Age: 76 Year
  Sex: Female

DRUGS (4)
  1. TAXOTERE [Suspect]
     Indication: BREAST CANCER
     Route: 042
     Dates: start: 20080101, end: 20080101
  2. FLUOROURACIL [Concomitant]
     Indication: BREAST CANCER
  3. CYCLOPHOSPHAMIDE [Concomitant]
     Indication: BREAST CANCER
  4. EPIRUBICIN [Concomitant]
     Indication: BREAST CANCER

REACTIONS (2)
  - INTERSTITIAL LUNG DISEASE [None]
  - RESPIRATORY FAILURE [None]
